FAERS Safety Report 4862098-6 (Version None)
Quarter: 2005Q4

REPORT INFORMATION
  Report Type: 
  Country: None (occurrence: None)
  Receive Date: 20051221
  Receipt Date: 20050805
  Transmission Date: 20060501
  Serious: Yes (Hospitalization)
  Sender: FDA-Public Use
  Company Number: CA-BOEHRINGER INGELHEIM PHARMACEUTICALS, INC.-2005-CN-00853CN

PATIENT
  Sex: Male

DRUGS (3)
  1. TIPRANAVIR + RITONAVIR CO-ADMIN [Suspect]
     Indication: HIV INFECTION
     Dosage: TPV 1000MG / RTV 400MG
     Route: 048
     Dates: start: 20030828
  2. 3TC [Concomitant]
     Indication: HIV INFECTION
     Route: 048
     Dates: start: 20030828
  3. TENOFOVIR [Concomitant]
     Indication: HIV INFECTION
     Route: 048
     Dates: start: 20030828

REACTIONS (4)
  - COUGH [None]
  - DRUG ABUSER [None]
  - METHAEMOGLOBINAEMIA [None]
  - PNEUMONIA [None]
